FAERS Safety Report 11922644 (Version 1)
Quarter: 2016Q1

REPORT INFORMATION
  Report Type: Spontaneous
  Country: US (occurrence: US)
  Receive Date: 20160115
  Receipt Date: 20160115
  Transmission Date: 20160526
  Serious: Yes (Other)
  Sender: FDA-Public Use
  Company Number: US-ALLERGAN-1600779US

PATIENT
  Age: 63 Year
  Sex: Female

DRUGS (4)
  1. COMBIGAN [Suspect]
     Active Substance: BRIMONIDINE TARTRATE\TIMOLOL MALEATE
     Indication: INTRAOCULAR PRESSURE INCREASED
     Dosage: UNK
     Route: 047
     Dates: start: 201008
  2. PREDNISONE. [Concomitant]
     Active Substance: PREDNISONE
     Indication: INTRAOCULAR PRESSURE TEST
     Dosage: UNK
  3. TRAVATAN Z [Concomitant]
     Active Substance: TRAVOPROST
     Dosage: UNK
     Route: 047
  4. REFRESH CONTACTS [Suspect]
     Active Substance: CARBOXYMETHYLCELLULOSE SODIUM
     Indication: PRODUCT USED FOR UNKNOWN INDICATION
     Dosage: UNK
     Route: 047

REACTIONS (5)
  - Personality change [Not Recovered/Not Resolved]
  - Eye haemorrhage [Recovered/Resolved]
  - Eye inflammation [Recovered/Resolved]
  - Intraocular pressure increased [Unknown]
  - Weight increased [Unknown]
